FAERS Safety Report 7153577-X (Version None)
Quarter: 2010Q4

REPORT INFORMATION
  Report Type: 
  Country: None (occurrence: None)
  Receive Date: 20101213
  Receipt Date: 20101207
  Transmission Date: 20110411
  Serious: Yes (Death, Hospitalization)
  Sender: FDA-Public Use
  Company Number: GB-CELGENEUS-167-C5013-10110640

PATIENT
  Sex: Male
  Weight: 76 kg

DRUGS (35)
  1. CC-5013 [Suspect]
     Indication: MANTLE CELL LYMPHOMA
     Route: 048
     Dates: start: 20100917
  2. CC-5013 [Suspect]
     Route: 048
     Dates: start: 20101015, end: 20101101
  3. VENTOLIN [Concomitant]
     Route: 048
     Dates: start: 20100803
  4. OMEPRAZOLE [Concomitant]
     Indication: GASTRITIS PROPHYLAXIS
     Route: 048
     Dates: start: 20011220, end: 20101115
  5. AMITRYPTILINE [Concomitant]
     Route: 048
     Dates: start: 20080418, end: 20101119
  6. AMITRYPTILINE [Concomitant]
  7. QUININE SULFATE [Concomitant]
     Indication: MUSCLE SPASMS
     Route: 048
     Dates: start: 20060320, end: 20101019
  8. TAMSULOSIN [Concomitant]
     Indication: BENIGN PROSTATIC HYPERPLASIA
     Route: 048
     Dates: start: 20091112, end: 20101117
  9. IODINE [Concomitant]
     Indication: OSTEOARTHRITIS
     Route: 048
     Dates: start: 20090512, end: 20101031
  10. CANDESARTAN [Concomitant]
     Indication: CARDIAC FAILURE CONGESTIVE
     Route: 048
     Dates: start: 20090126, end: 20101103
  11. ASPIRIN [Concomitant]
     Indication: THROMBOSIS PROPHYLAXIS
     Route: 048
     Dates: start: 20100917
  12. DIFFLAM [Concomitant]
     Route: 048
     Dates: start: 20000101, end: 20101117
  13. SYMBICORT [Concomitant]
     Route: 055
     Dates: start: 20091014
  14. SALBUTAMOL [Concomitant]
     Route: 055
     Dates: start: 20001031
  15. TRAMADOL [Concomitant]
     Indication: PAIN
     Route: 048
     Dates: start: 20080623, end: 20101113
  16. FRUSEMIDE [Concomitant]
     Indication: CARDIAC FAILURE CONGESTIVE
     Dosage: 40 OR 20MG
     Route: 048
     Dates: start: 20081201
  17. FRUSEMIDE [Concomitant]
     Route: 048
     Dates: start: 20101008, end: 20101103
  18. ETODOLAC [Concomitant]
     Route: 048
  19. MAGNESIUM HYDROXIDE [Concomitant]
     Indication: CONSTIPATION
     Route: 048
     Dates: start: 20100920
  20. ALLOPURINOL [Concomitant]
     Indication: PROPHYLAXIS
     Route: 048
     Dates: start: 20100918
  21. CLEXANE [Concomitant]
     Route: 058
     Dates: start: 20100918, end: 20100919
  22. CLEXANE [Concomitant]
     Route: 058
     Dates: start: 20101111, end: 20101112
  23. GELCLAIR [Concomitant]
     Route: 061
     Dates: start: 20101115, end: 20101116
  24. NYSTATIN [Concomitant]
     Indication: HERPES SIMPLEX
     Route: 048
     Dates: start: 20101106, end: 20101106
  25. NYSTATIN [Concomitant]
     Route: 048
     Dates: start: 20101107, end: 20101109
  26. NYSTATIN [Concomitant]
     Route: 048
     Dates: start: 20101110
  27. SENNA [Concomitant]
     Indication: CONSTIPATION
     Route: 048
     Dates: start: 20101107, end: 20101117
  28. SPIRONOLACTONE [Concomitant]
     Route: 048
     Dates: start: 20100809, end: 20100924
  29. SPIRONOLACTONE [Concomitant]
     Route: 048
     Dates: start: 20101120
  30. NORMAL SALINE [Concomitant]
     Route: 048
     Dates: start: 20101115
  31. ACYCLOVIR [Concomitant]
     Indication: HERPES SIMPLEX
     Route: 048
     Dates: start: 20101110, end: 20101113
  32. ACYCLOVIR [Concomitant]
     Route: 048
     Dates: start: 20101116
  33. AMOXICILLIN [Concomitant]
     Indication: PROPHYLAXIS
     Route: 048
     Dates: start: 20101117
  34. RAMIPRIL [Concomitant]
     Indication: CARDIAC FAILURE CONGESTIVE
     Route: 048
     Dates: start: 20081201
  35. VITAMIN K TAB [Concomitant]
     Route: 048
     Dates: start: 20101113, end: 20101116

REACTIONS (2)
  - ARTHRITIS [None]
  - CARDIAC FAILURE CONGESTIVE [None]
